FAERS Safety Report 7339697-5 (Version None)
Quarter: 2011Q1

REPORT INFORMATION
  Report Type: 
  Country: None (occurrence: None)
  Receive Date: 20110304
  Receipt Date: 20110304
  Transmission Date: 20110831
  Serious: No
  Sender: FDA-Public Use
  Company Number: None

PATIENT
  Age: 55 Year
  Sex: Female
  Weight: 62.5964 kg

DRUGS (2)
  1. VITAMIN B-12 500 MCG COUNTRYLIFE [Suspect]
     Indication: VITAMIN SUPPLEMENTATION
     Dosage: 500 MCG ONCE DAILY SUBLINGUAL
     Route: 060
     Dates: start: 20110301
  2. VITAMIN B-12 500 MCG COUNTRYLIFE [Suspect]
     Indication: VITAMIN SUPPLEMENTATION
     Dosage: 500 MCG ONCE DAILY SUBLINGUAL
     Route: 060
     Dates: start: 20110228

REACTIONS (2)
  - DYSGEUSIA [None]
  - ABDOMINAL DISCOMFORT [None]
